FAERS Safety Report 9178131 (Version 1)
Quarter: 2013Q1

REPORT INFORMATION
  Report Type: Spontaneous
  Country: PE (occurrence: US)
  Receive Date: 20130321
  Receipt Date: 20130321
  Transmission Date: 20140127
  Serious: Yes (Death)
  Sender: FDA-Public Use
  Company Number: PE-ELI_LILLY_AND_COMPANY-US201303006690

PATIENT
  Sex: 0

DRUGS (2)
  1. GEMCITABINE HYDROCHLORIDE [Suspect]
     Indication: BREAST CANCER METASTATIC
     Dosage: 1000 MG/M2, DAY 1 AND 8
  2. LAPATINIB [Concomitant]
     Indication: BREAST CANCER METASTATIC
     Dosage: 1250 MG, QD

REACTIONS (2)
  - Death [Fatal]
  - Toxicity to various agents [None]
